FAERS Safety Report 10242082 (Version 2)
Quarter: 2014Q2

REPORT INFORMATION
  Report Type: Report from Study
  Country: US (occurrence: US)
  Receive Date: 20140617
  Receipt Date: 20140617
  Transmission Date: 20141212
  Serious: Yes (Other)
  Sender: FDA-Public Use
  Company Number: US-SA-2014SA039824

PATIENT
  Age: 59 Year
  Sex: Male

DRUGS (2)
  1. AUBAGIO [Suspect]
     Indication: MULTIPLE SCLEROSIS
     Route: 048
     Dates: start: 20131226
  2. NEURONTIN [Concomitant]

REACTIONS (3)
  - Trigeminal neuralgia [Not Recovered/Not Resolved]
  - Muscle spasms [Recovering/Resolving]
  - Multiple sclerosis relapse [Recovering/Resolving]
